FAERS Safety Report 4524412-0 (Version None)
Quarter: 2004Q4

REPORT INFORMATION
  Report Type: 
  Country: None (occurrence: None)
  Receive Date: 20041117
  Receipt Date: 20031125
  Transmission Date: 20050328
  Serious: Yes (Other)
  Sender: FDA-Public Use
  Company Number: SUS1-2003-00486

PATIENT
  Sex: Male

DRUGS (1)
  1. CARBATROL [Suspect]
     Dosage: ORAL
     Route: 048

REACTIONS (1)
  - LEUKOPENIA [None]
